FAERS Safety Report 4275344-7 (Version None)
Quarter: 2004Q1

REPORT INFORMATION
  Report Type: 
  Country: None (occurrence: None)
  Receive Date: 20040116
  Receipt Date: 20031104
  Transmission Date: 20041129
  Serious: No
  Sender: FDA-Public Use
  Company Number: ENZ-ABE-153

PATIENT
  Age: 30 Year
  Sex: Male
  Weight: 68.0396 kg

DRUGS (1)
  1. ABELCET [Suspect]
     Indication: MENINGITIS CRYPTOCOCCAL
     Dosage: IV
     Route: 042
     Dates: start: 20031001

REACTIONS (2)
  - ANAEMIA [None]
  - BONE MARROW DEPRESSION [None]
